FAERS Safety Report 17165868 (Version 1)
Quarter: 2019Q4

REPORT INFORMATION
  Report Type: Other
  Country: NL (occurrence: NL)
  Receive Date: 20191217
  Receipt Date: 20191217
  Transmission Date: 20200122
  Serious: Yes (Life-Threatening, Hospitalization, Other)
  Sender: FDA-Public Use
  Company Number: NL-ALSI-201900500

PATIENT
  Age: 26 Year
  Sex: Male
  Weight: 66 kg

DRUGS (1)
  1. NITROUS OXIDE. [Suspect]
     Active Substance: NITROUS OXIDE
     Indication: DRUG ABUSE
     Route: 055

REACTIONS (6)
  - Hyperammonaemia [Recovered/Resolved]
  - Metabolic encephalopathy [Recovered/Resolved]
  - Vitamin B12 deficiency [Recovered/Resolved]
  - Pneumomediastinum [Recovered/Resolved]
  - Drug abuse [Recovered/Resolved]
  - Barotrauma [Recovered/Resolved]
